FAERS Safety Report 18928533 (Version 1)
Quarter: 2021Q1

REPORT INFORMATION
  Report Type: Spontaneous
  Country: US (occurrence: US)
  Receive Date: 20210223
  Receipt Date: 20210223
  Transmission Date: 20210420
  Serious: No
  Sender: FDA-Public Use
  Company Number: US-CARDINAL HEALTH 414, LLC-2107179

PATIENT
  Age: 48 Year
  Sex: Female

DRUGS (1)
  1. TECHNETIUM TC?99M SESTAMIBI KIT [Suspect]
     Active Substance: TECHNETIUM TC-99M SESTAMIBI
     Indication: PARATHYROID SCAN ABNORMAL
     Route: 042
     Dates: start: 20200721, end: 20200721

REACTIONS (2)
  - Drug ineffective for unapproved indication [Unknown]
  - Off label use [Recovered/Resolved]

NARRATIVE: CASE EVENT DATE: 20200721
